FAERS Safety Report 10793301 (Version 2)
Quarter: 2015Q1

REPORT INFORMATION
  Report Type: Spontaneous
  Country: JP (occurrence: JP)
  Receive Date: 20150213
  Receipt Date: 20150318
  Transmission Date: 20150721
  Serious: No
  Sender: FDA-Public Use
  Company Number: JP-AMGEN-JPNSP2015013871

PATIENT

DRUGS (1)
  1. VECTIBIX [Suspect]
     Active Substance: PANITUMUMAB
     Indication: COLON CANCER
     Dosage: UNK
     Route: 041

REACTIONS (4)
  - Paronychia [Unknown]
  - Neuropathy peripheral [Unknown]
  - Rash [Unknown]
  - Stomatitis [Unknown]
